FAERS Safety Report 4457882-7 (Version None)
Quarter: 2004Q3

REPORT INFORMATION
  Report Type: 
  Country: None (occurrence: None)
  Receive Date: 20040917
  Receipt Date: 20040706
  Transmission Date: 20050211
  Serious: Yes (Other)
  Sender: FDA-Public Use
  Company Number: US-JNJFOC-20040607038

PATIENT
  Age: 52 Year
  Sex: Female
  Weight: 77.1115 kg

DRUGS (1)
  1. TOPAMAX [Suspect]
     Indication: BIPOLAR DISORDER
     Dosage: 50 MG, IN 1 DAY, ORAL
     Route: 048
     Dates: start: 20040201, end: 20040618

REACTIONS (9)
  - ADVERSE DRUG REACTION [None]
  - ALOPECIA [None]
  - DANDRUFF [None]
  - DERMATITIS EXFOLIATIVE [None]
  - RASH [None]
  - ROAD TRAFFIC ACCIDENT [None]
  - SEBORRHOEIC DERMATITIS [None]
  - SUNBURN [None]
  - VISUAL ACUITY REDUCED TRANSIENTLY [None]
